FAERS Safety Report 21213597 (Version 3)
Quarter: 2024Q4

REPORT INFORMATION
  Report Type: Report from Study
  Country: US (occurrence: US)
  Receive Date: 20220816
  Receipt Date: 20241231
  Transmission Date: 20250115
  Serious: Yes (Other)
  Sender: TAKEDA
  Company Number: US-TAKEDA-2022TUS055292

PATIENT
  Age: 40 Year
  Sex: Male

DRUGS (2)
  1. VONICOG ALFA [Suspect]
     Active Substance: VONICOG ALFA
     Indication: Product used for unknown indication
     Dosage: 4000 INTERNATIONAL UNIT
  2. VONICOG ALFA [Suspect]
     Active Substance: VONICOG ALFA
     Dosage: 8000 INTERNATIONAL UNIT

REACTIONS (4)
  - Epistaxis [Recovered/Resolved]
  - Nasal dryness [Recovered/Resolved]
  - Product dose omission issue [Unknown]
  - Sinus disorder [Unknown]

NARRATIVE: CASE EVENT DATE: 20220802
